FAERS Safety Report 6807391-2 (Version None)
Quarter: 2010Q2

REPORT INFORMATION
  Report Type: 
  Country: None (occurrence: None)
  Receive Date: 20100629
  Receipt Date: 20080911
  Transmission Date: 20101027
  Serious: No
  Sender: FDA-Public Use
  Company Number: US-PFIZER INC-2008076928

PATIENT
  Sex: Male
  Weight: 113.63 kg

DRUGS (3)
  1. VIAGRA [Suspect]
     Indication: ERECTILE DYSFUNCTION
     Dates: start: 20080901
  2. NARDIL [Concomitant]
  3. SEROQUEL [Concomitant]

REACTIONS (4)
  - DYSURIA [None]
  - GENITAL HYPOAESTHESIA [None]
  - INCORRECT DOSE ADMINISTERED [None]
  - PENILE VASCULAR DISORDER [None]
